FAERS Safety Report 5607694-3 (Version None)
Quarter: 2008Q1

REPORT INFORMATION
  Report Type: 
  Country: None (occurrence: None)
  Receive Date: 20080130
  Receipt Date: 20080116
  Transmission Date: 20080703
  Serious: Yes (Hospitalization)
  Sender: FDA-Public Use
  Company Number: JP-AMGEN-US261659

PATIENT
  Age: 72 Year
  Sex: Female

DRUGS (6)
  1. ENBREL [Suspect]
     Indication: RHEUMATOID ARTHRITIS
     Route: 058
     Dates: start: 20071201, end: 20080101
  2. PROGRAF [Suspect]
     Indication: DRUG USE FOR UNKNOWN INDICATION
     Dosage: UNKNOWN
     Route: 048
  3. RHEUMATREX [Suspect]
     Indication: RHEUMATOID ARTHRITIS
     Route: 048
     Dates: start: 20030601, end: 20080101
  4. LEUCOVORIN CALCIUM [Concomitant]
  5. ACETAZOLAMIDE [Concomitant]
  6. SODIUM BICARBONATE [Concomitant]

REACTIONS (3)
  - BONE MARROW FAILURE [None]
  - DIARRHOEA [None]
  - INTERSTITIAL LUNG DISEASE [None]
